FAERS Safety Report 6456389-5 (Version None)
Quarter: 2009Q4

REPORT INFORMATION
  Report Type: 
  Country: None (occurrence: None)
  Receive Date: 20091125
  Receipt Date: 20091112
  Transmission Date: 20100525
  Serious: Yes (Other)
  Sender: FDA-Public Use
  Company Number: PHEH2009US15981

PATIENT
  Sex: Male

DRUGS (2)
  1. EXJADE [Suspect]
     Indication: IRON METABOLISM DISORDER
     Dosage: 1000 MG DAILY
     Route: 048
  2. TRANSFUSIONS [Concomitant]

REACTIONS (2)
  - CELLULITIS [None]
  - WHITE BLOOD CELL COUNT DECREASED [None]
